FAERS Safety Report 7248741-5 (Version None)
Quarter: 2011Q1

REPORT INFORMATION
  Report Type: 
  Country: None (occurrence: None)
  Receive Date: 20110121
  Receipt Date: 20110121
  Transmission Date: 20110831
  Serious: Yes (Death, Other)
  Sender: FDA-Public Use
  Company Number: None

PATIENT
  Age: 62 Year
  Sex: Female
  Weight: 70.7611 kg

DRUGS (1)
  1. TAMBOCOR [Suspect]
     Indication: ARRHYTHMIA

REACTIONS (3)
  - ATRIAL FIBRILLATION [None]
  - ARRHYTHMIA [None]
  - PRODUCT SUBSTITUTION ISSUE [None]
